FAERS Safety Report 5871585-3 (Version None)
Quarter: 2008Q3

REPORT INFORMATION
  Report Type: 
  Country: None (occurrence: None)
  Receive Date: 20080905
  Receipt Date: 20080715
  Transmission Date: 20090109
  Serious: No
  Sender: FDA-Public Use
  Company Number: A0731255A

PATIENT
  Age: 47 Year
  Sex: Female
  Weight: 78.2 kg

DRUGS (3)
  1. REQUIP [Suspect]
     Indication: RESTLESS LEGS SYNDROME
     Route: 048
  2. TOPROL-XL [Concomitant]
     Indication: TACHYCARDIA
     Dosage: 100MG PER DAY
     Route: 048
  3. RELAFEN [Concomitant]

REACTIONS (2)
  - PALPITATIONS [None]
  - TACHYCARDIA [None]
